FAERS Safety Report 7810949-5 (Version None)
Quarter: 2011Q4

REPORT INFORMATION
  Report Type: 
  Country: None (occurrence: None)
  Receive Date: 20111013
  Receipt Date: 20111012
  Transmission Date: 20120403
  Serious: No
  Sender: FDA-Public Use
  Company Number: US-PFIZER INC-2011243963

PATIENT
  Sex: Male
  Weight: 81.63 kg

DRUGS (4)
  1. CHANTIX [Suspect]
     Dosage: 0.5 MG, UNK
     Route: 048
     Dates: start: 20110101, end: 20110101
  2. CHANTIX [Suspect]
     Indication: SMOKING CESSATION THERAPY
     Dosage: 0.5 MG, DAILY
     Route: 048
     Dates: start: 20110901, end: 20110101
  3. CHANTIX [Suspect]
     Dosage: BLUE PILL, UNK
     Route: 048
     Dates: start: 20110101, end: 20111011
  4. RAPAFLO [Suspect]
     Indication: PROSTATIC DISORDER
     Dosage: 8 MG, DAILY
     Route: 048

REACTIONS (2)
  - ABDOMINAL PAIN [None]
  - WEIGHT INCREASED [None]
